FAERS Safety Report 4853683-6 (Version None)
Quarter: 2005Q4

REPORT INFORMATION
  Report Type: 
  Country: None (occurrence: None)
  Receive Date: 20051214
  Receipt Date: 20051206
  Transmission Date: 20060501
  Serious: Yes (Other)
  Sender: FDA-Public Use
  Company Number: JP-AVENTIS-200520770GDDC

PATIENT
  Age: 84 Year
  Sex: Female

DRUGS (1)
  1. EUGLUCON [Suspect]
     Indication: DIABETES MELLITUS
     Route: 048
     Dates: start: 19980615, end: 20050720

REACTIONS (2)
  - APLASTIC ANAEMIA [None]
  - LUNG DISORDER [None]
